FAERS Safety Report 15496208 (Version 3)
Quarter: 2018Q4

REPORT INFORMATION
  Report Type: Spontaneous
  Country: US (occurrence: US)
  Receive Date: 20181012
  Receipt Date: 20181120
  Transmission Date: 20190205
  Serious: No
  Sender: FDA-Public Use
  Company Number: US-ACTELION-A-NJ2018-178278

PATIENT
  Age: 80 Year
  Sex: Female
  Weight: 57.6 kg

DRUGS (2)
  1. WARFARIN [Concomitant]
     Active Substance: WARFARIN
  2. OPSUMIT [Suspect]
     Active Substance: MACITENTAN
     Indication: PULMONARY HYPERTENSION
     Dosage: 10 MG, QD
     Route: 048
     Dates: start: 20180813

REACTIONS (2)
  - Oedema peripheral [Unknown]
  - Burning sensation [Unknown]

NARRATIVE: CASE EVENT DATE: 201808
